FAERS Safety Report 9289364 (Version 6)
Quarter: 2021Q2

REPORT INFORMATION
  Report Type: Report from Study
  Country: CA (occurrence: CA)
  Receive Date: 20130514
  Receipt Date: 20210420
  Transmission Date: 20210717
  Serious: Yes (Other)
  Sender: FDA-Public Use
  Company Number: PHHY2012CA003728

PATIENT
  Age: 40 Year
  Sex: Female
  Weight: 82 kg

DRUGS (6)
  1. EXTAVIA [Suspect]
     Active Substance: INTERFERON BETA-1B
     Dosage: 8 MIU, QOD
     Route: 065
     Dates: start: 20141105
  2. EXTAVIA [Suspect]
     Active Substance: INTERFERON BETA-1B
     Indication: RELAPSING-REMITTING MULTIPLE SCLEROSIS
     Dosage: 8 MIU, QOD ((2MIUX3 DOSES} 4MIUX3 DOSES } 6MIUX3 DOSES} THEN 8MIU QOD)
     Route: 058
     Dates: start: 20111121, end: 201301
  3. EXTAVIA [Suspect]
     Active Substance: INTERFERON BETA-1B
     Dosage: 8 MIU, ONE EVERY 2 DAYS
     Route: 058
  4. EXTAVIA [Suspect]
     Active Substance: INTERFERON BETA-1B
     Dosage: 0.25 ML (2 MILLION UNITS), INCREASING 0.25 ML (2 MILLION UNITS) EVERY OTHER DAY TO REACH A TARGET DO
     Route: 065
     Dates: start: 20201216
  5. EXTAVIA [Suspect]
     Active Substance: INTERFERON BETA-1B
     Dosage: 8 MIU, ONE EVERY 2 DAYS
     Route: 065
  6. EXTAVIA [Suspect]
     Active Substance: INTERFERON BETA-1B
     Dosage: UNK
     Route: 065

REACTIONS (19)
  - Feeling hot [Recovered/Resolved]
  - Visual impairment [Unknown]
  - Hodgkin^s disease [Recovered/Resolved]
  - Weight increased [Recovered/Resolved]
  - Weight decreased [Recovered/Resolved]
  - Feeling abnormal [Recovered/Resolved]
  - Nausea [Recovered/Resolved]
  - Product dose omission issue [Recovered/Resolved]
  - Multiple sclerosis relapse [Recovered/Resolved]
  - Injection site pruritus [Recovered/Resolved]
  - Breast mass [Recovered/Resolved]
  - Pain in extremity [Recovered/Resolved]
  - Visual acuity reduced [Recovered/Resolved]
  - Hyperphagia [Recovered/Resolved]
  - Injection site erythema [Unknown]
  - Injection site rash [Recovered/Resolved]
  - Injection site bruising [Recovered/Resolved]
  - Hypoaesthesia [Recovered/Resolved]
  - Crying [Recovered/Resolved]

NARRATIVE: CASE EVENT DATE: 20130419
